FAERS Safety Report 13267951 (Version 4)
Quarter: 2017Q2

REPORT INFORMATION
  Report Type: Spontaneous
  Country: JP (occurrence: JP)
  Receive Date: 20170224
  Receipt Date: 20170512
  Transmission Date: 20170830
  Serious: Yes (Death)
  Sender: FDA-Public Use
  Company Number: PHJP2017JP006353

PATIENT
  Age: 87 Year
  Sex: Male
  Weight: 51.2 kg

DRUGS (12)
  1. SOLU-MEDROL [Concomitant]
     Active Substance: METHYLPREDNISOLONE SODIUM SUCCINATE
     Dosage: 125 MG, BID
     Route: 065
  2. NEORAL [Suspect]
     Active Substance: CYCLOSPORINE
     Indication: RASH
     Dosage: 100 MG, QD
     Route: 065
     Dates: start: 20150713, end: 20150716
  3. MEROPEN [Concomitant]
     Active Substance: MEROPENEM
     Indication: C-REACTIVE PROTEIN INCREASED
     Dosage: 1 G, BID
     Route: 041
     Dates: start: 20150709, end: 20150722
  4. SOLU-MEDROL [Concomitant]
     Active Substance: METHYLPREDNISOLONE SODIUM SUCCINATE
     Indication: C-REACTIVE PROTEIN INCREASED
     Dosage: 250 MG, BID
     Route: 065
     Dates: start: 20150715, end: 20150716
  5. SOLU-MEDROL [Concomitant]
     Active Substance: METHYLPREDNISOLONE SODIUM SUCCINATE
     Dosage: 1 G, QD
     Route: 065
     Dates: start: 20150716, end: 20150718
  6. PREDNISOLONE. [Concomitant]
     Active Substance: PREDNISOLONE
     Indication: RASH
     Dosage: 20 MG, QD
     Route: 065
     Dates: start: 20150511, end: 20150519
  7. CIPROXAN [Concomitant]
     Active Substance: CIPROFLOXACIN
     Indication: C-REACTIVE PROTEIN INCREASED
     Dosage: 1 G, BID
     Route: 065
     Dates: start: 20150722
  8. ALBUMIN [Concomitant]
     Active Substance: ALBUMIN HUMAN
     Indication: PEMPHIGUS
     Dosage: UNK
     Route: 041
  9. PREDNISOLONE. [Concomitant]
     Active Substance: PREDNISOLONE
     Dosage: 15 MG, UNK
     Route: 065
     Dates: start: 20150520
  10. CEFAZOLIN SODIUM. [Concomitant]
     Active Substance: CEFAZOLIN SODIUM
     Indication: C-REACTIVE PROTEIN INCREASED
     Dosage: 1 G, BID
     Route: 065
     Dates: start: 20150706, end: 20150708
  11. ALBUMINAR [Concomitant]
     Active Substance: ALBUMIN HUMAN
     Indication: HYPOALBUMINAEMIA
     Dosage: UNK
     Route: 065
     Dates: start: 20150715, end: 20150717
  12. PREDNISOLONE. [Concomitant]
     Active Substance: PREDNISOLONE
     Dosage: 13.3 MG, UNK
     Route: 065

REACTIONS (6)
  - PO2 decreased [Fatal]
  - Pleural effusion [Fatal]
  - Product use in unapproved indication [Unknown]
  - Respiratory failure [Fatal]
  - Sputum increased [Fatal]
  - Bronchopulmonary aspergillosis [Fatal]

NARRATIVE: CASE EVENT DATE: 20150715
